FAERS Safety Report 4488766-6 (Version None)
Quarter: 2004Q4

REPORT INFORMATION
  Report Type: 
  Country: None (occurrence: None)
  Receive Date: 20041029
  Receipt Date: 20041019
  Transmission Date: 20050328
  Serious: Yes (Other)
  Sender: FDA-Public Use
  Company Number: JP-JNJFOC-20041005651

PATIENT
  Sex: Female
  Weight: 41.5 kg

DRUGS (8)
  1. REMICADE [Suspect]
     Route: 042
  2. REMICADE [Suspect]
     Route: 042
  3. REMICADE [Suspect]
     Route: 042
  4. REMICADE [Suspect]
     Route: 042
  5. REMICADE [Suspect]
     Indication: CROHN'S DISEASE
     Route: 042
  6. HYDROCORTONE [Concomitant]
     Indication: CROHN'S DISEASE
     Route: 042
  7. LEUKERIN [Concomitant]
     Indication: CROHN'S DISEASE
     Route: 049
  8. PENTASA [Concomitant]
     Indication: CROHN'S DISEASE
     Route: 049

REACTIONS (2)
  - ACQUIRED PYLORIC STENOSIS [None]
  - DRUG INEFFECTIVE [None]
